FAERS Safety Report 11492687 (Version 1)
Quarter: 2015Q3

REPORT INFORMATION
  Report Type: Spontaneous
  Country: US (occurrence: None)
  Receive Date: 20150910
  Receipt Date: 20150910
  Transmission Date: 20151125
  Serious: No
  Sender: FDA-Public Use
  Company Number: None

PATIENT
  Age: 82 Year
  Sex: Female
  Weight: 58.97 kg

DRUGS (15)
  1. FENOFIBRATE. [Concomitant]
     Active Substance: FENOFIBRATE
  2. QVAR [Concomitant]
     Active Substance: BECLOMETHASONE DIPROPIONATE
  3. MULTI VITS [Concomitant]
  4. ZANTAC [Concomitant]
     Active Substance: RANITIDINE HYDROCHLORIDE
  5. MAGNESIUM [Concomitant]
     Active Substance: MAGNESIUM
  6. ALBUTEROL. [Concomitant]
     Active Substance: ALBUTEROL
  7. ACID REDUCERS [Concomitant]
  8. CA [Concomitant]
  9. CRANBERRY+VIT C [Concomitant]
  10. VERAPAMIL [Concomitant]
     Active Substance: VERAPAMIL HYDROCHLORIDE
  11. PEPCID [Concomitant]
     Active Substance: FAMOTIDINE
  12. K [Concomitant]
  13. FISH OIL+ VIT E [Concomitant]
  14. SPIRIVA [Concomitant]
     Active Substance: TIOTROPIUM BROMIDE MONOHYDRATE
  15. PANTOPRAZOLE SODIUM DR [Suspect]
     Active Substance: PANTOPRAZOLE SODIUM
     Indication: GASTROOESOPHAGEAL REFLUX DISEASE
     Dosage: 40 MG QD PO BEFORE BREAKFAST
     Route: 048
     Dates: start: 20150714, end: 20150714

REACTIONS (1)
  - Tinnitus [None]

NARRATIVE: CASE EVENT DATE: 20150714
